FAERS Safety Report 6725639-X (Version None)
Quarter: 2010Q2

REPORT INFORMATION
  Report Type: 
  Country: None (occurrence: None)
  Receive Date: 20100514
  Receipt Date: 20100513
  Transmission Date: 20101027
  Serious: Yes (Hospitalization)
  Sender: FDA-Public Use
  Company Number: GB-JNJFOC-20090603434

PATIENT
  Age: 22 Year
  Sex: Female

DRUGS (1)
  1. GRISEOFULVIN [Suspect]
     Indication: TRICHOPHYTOSIS
     Route: 065

REACTIONS (10)
  - CARDIOVASCULAR DISORDER [None]
  - COLD SWEAT [None]
  - DIZZINESS [None]
  - HEPATOMEGALY [None]
  - IMMUNOGLOBULINS INCREASED [None]
  - LISTLESS [None]
  - LYMPHADENOPATHY [None]
  - SHIGELLA INFECTION [None]
  - SPLENOMEGALY [None]
  - TRICHOPHYTOSIS [None]
